FAERS Safety Report 9744849 (Version 3)
Quarter: 2014Q1

REPORT INFORMATION
  Report Type: Spontaneous
  Country: US (occurrence: US)
  Receive Date: 20131211
  Receipt Date: 20140206
  Transmission Date: 20141002
  Serious: Yes (Hospitalization, Other)
  Sender: FDA-Public Use
  Company Number: US-AMGEN-USASP2013086677

PATIENT
  Age: 65 Year
  Sex: Female
  Weight: 100.68 kg

DRUGS (8)
  1. ENBREL [Suspect]
     Indication: PSORIATIC ARTHROPATHY
     Dosage: 50 MG, QWK
     Route: 065
     Dates: start: 20050701, end: 20131030
  2. MEDROL                             /00049603/ [Concomitant]
     Dosage: 4 MG, UNK (1 AS DIRECTED)
  3. ARMOUR THYROID [Concomitant]
     Dosage: 90 MG, QD
  4. PRILOSEC                           /00661201/ [Concomitant]
     Dosage: 20 MG, QD AS NEEDED
  5. LIDODERM [Concomitant]
     Dosage: 5%(FILM)SIG-I PATCH REPLACE EVERY 24 HOURS. ON FOR 12 HOURS, OFF FOR 12
  6. SKELAXIN                           /00611501/ [Concomitant]
     Dosage: 800 MG, THREE TIMES DAILY AS NEEDED
  7. RELAFEN [Concomitant]
     Dosage: 500 MG, 2 TABS ONCE A DAY AS NEEDED
  8. FLEXERIL                           /00428402/ [Concomitant]
     Indication: MUSCLE SPASMS
     Dosage: 10 MG, 3 TIMES A DAY AS NEEDED FOR SPASMS

REACTIONS (22)
  - Osteoarthritis [Recovered/Resolved]
  - Arthritis [Recovered/Resolved]
  - Paralysis [Not Recovered/Not Resolved]
  - Nerve injury [Not Recovered/Not Resolved]
  - Monoplegia [Not Recovered/Not Resolved]
  - Thyroid cancer [Unknown]
  - Ovarian failure [Unknown]
  - Post procedural hypothyroidism [Unknown]
  - Tenosynovitis [Unknown]
  - Sensory loss [Not Recovered/Not Resolved]
  - Arthropathy [Not Recovered/Not Resolved]
  - Gait disturbance [Recovered/Resolved]
  - Arthralgia [Recovering/Resolving]
  - Osteopenia [Unknown]
  - Swelling [Recovering/Resolving]
  - Walking aid user [Unknown]
  - Pain in extremity [Recovering/Resolving]
  - Joint range of motion decreased [Unknown]
  - Rheumatoid factor positive [Unknown]
  - Stress [Not Recovered/Not Resolved]
  - Muscle disorder [Not Recovered/Not Resolved]
  - Psoriasis [Recovering/Resolving]
